FAERS Safety Report 9329811 (Version 2)
Quarter: 2014Q2

REPORT INFORMATION
  Report Type: Spontaneous
  Country: US (occurrence: US)
  Receive Date: 20130604
  Receipt Date: 20140524
  Transmission Date: 20141212
  Serious: Yes (Other)
  Sender: FDA-Public Use
  Company Number: US-SANOFI-AVENTIS-2013SA037900

PATIENT
  Age: 45 Year
  Sex: Female
  Weight: 87 kg

DRUGS (6)
  1. LANTUS SOLOSTAR [Suspect]
     Indication: TYPE 2 DIABETES MELLITUS
     Dosage: TAKEN FROM: 1 YEAR, 1 MONTH AGO DOSE:45 UNIT(S)
     Route: 051
     Dates: start: 20130315
  2. SOLOSTAR [Suspect]
     Indication: TYPE 2 DIABETES MELLITUS
     Dosage: TAKEN FROM: 1 YEAR, 1 MONTH AGO
  3. METFORMIN [Concomitant]
     Indication: DIABETES MELLITUS
     Dates: start: 200707
  4. STOOL SOFTENER [Concomitant]
     Indication: CONSTIPATION
     Dates: start: 201112
  5. ONGLYZA [Concomitant]
     Indication: DIABETES MELLITUS
     Dates: start: 201203
  6. CRESTOR [Concomitant]
     Indication: BLOOD CHOLESTEROL
     Dosage: 3 IN A WEEK
     Dates: start: 201203

REACTIONS (2)
  - Influenza [Unknown]
  - Blood glucose increased [Unknown]
